FAERS Safety Report 7146046 (Version 18)
Quarter: 2014Q2

REPORT INFORMATION
  Report Type: Spontaneous
  Country: US (occurrence: US)
  Receive Date: 20091011
  Receipt Date: 20140526
  Transmission Date: 20141212
  Serious: Yes (Hospitalization, Other)
  Sender: FDA-Public Use
  Company Number: PHEH2009US12310

PATIENT
  Sex: Male

DRUGS (22)
  1. ZOMETA [Suspect]
     Indication: PLASMA CELL MYELOMA
     Route: 041
     Dates: start: 2003, end: 2006
  2. AREDIA [Suspect]
  3. VIRAMUNE [Concomitant]
  4. NULYTELY [Concomitant]
  5. PERCOCET [Concomitant]
  6. MS CONTIN [Concomitant]
  7. NEURONTIN [Concomitant]
  8. ABACAVIR [Concomitant]
  9. LAMIVUDINE [Concomitant]
  10. ASCORBIC ACID [Concomitant]
  11. CLINDAMYCIN [Concomitant]
  12. LISINOPRIL [Concomitant]
  13. XALATAN [Concomitant]
  14. COMBIVIR [Concomitant]
  15. AMITRIPTYLINE [Concomitant]
     Dosage: 25 MG, UNK
     Route: 048
  16. ABACAVIR SULFATE W/LAMIVUDINE [Concomitant]
  17. NORVIR [Concomitant]
     Dosage: 100 MG, UNK
     Route: 048
  18. PERIDEX [Concomitant]
     Dosage: 0.018 G, BID
  19. TRUVADA [Concomitant]
     Route: 048
  20. DARUNAVIR [Concomitant]
     Dosage: 800 MG, UNK
     Route: 048
  21. KEFLEX [Concomitant]
     Dosage: 250 MG, QID
  22. CIPRO ^MILES^ [Concomitant]
     Dosage: 500 MG, UNK

REACTIONS (154)
  - Pancreatitis acute [Unknown]
  - Inflammation [Unknown]
  - Abdominal pain [Unknown]
  - Diverticulum [Unknown]
  - Nephrolithiasis [Unknown]
  - Constipation [Unknown]
  - Subcutaneous abscess [Unknown]
  - Laceration [Unknown]
  - Osteonecrosis of jaw [Unknown]
  - Pain [Unknown]
  - Infection [Unknown]
  - Deformity [Unknown]
  - Physical disability [Unknown]
  - Injury [Unknown]
  - Anxiety [Unknown]
  - Emotional distress [Unknown]
  - Jaw cyst [Unknown]
  - Tooth abscess [Unknown]
  - Jaw fracture [Unknown]
  - Dental caries [Unknown]
  - Gingival swelling [Unknown]
  - Tenderness [Unknown]
  - Toothache [Unknown]
  - Overdose [Unknown]
  - Fatigue [Unknown]
  - Headache [Unknown]
  - Pain in jaw [Unknown]
  - Osteomyelitis [Unknown]
  - Sensitivity of teeth [Unknown]
  - Hypoaesthesia oral [Unknown]
  - Discomfort [Unknown]
  - Abscess neck [Unknown]
  - Lymphadenopathy [Unknown]
  - Weight decreased [Unknown]
  - Renal cyst [Unknown]
  - Intervertebral disc degeneration [Unknown]
  - Major depression [Unknown]
  - Depression [Unknown]
  - Fear [Unknown]
  - Suspiciousness [Unknown]
  - Delusion [Unknown]
  - Dissociative identity disorder [Unknown]
  - Post-traumatic stress disorder [Unknown]
  - Alcohol abuse [Unknown]
  - Anhedonia [Unknown]
  - Apathy [Unknown]
  - Hypersomnia [Unknown]
  - Agitation [Unknown]
  - Abnormal behaviour [Unknown]
  - Disturbance in attention [Unknown]
  - Suicidal ideation [Unknown]
  - Fistula discharge [Unknown]
  - Thrombocytopenia [Unknown]
  - Xerosis [Unknown]
  - Glaucoma [Unknown]
  - Deafness [Unknown]
  - Proteinuria [Unknown]
  - Dry gangrene [Unknown]
  - Foot deformity [Unknown]
  - Pulmonary granuloma [Unknown]
  - Osteoarthritis [Unknown]
  - Bone deformity [Unknown]
  - Facet joint syndrome [Unknown]
  - Arthropathy [Unknown]
  - Aortic calcification [Unknown]
  - Aortic arteriosclerosis [Unknown]
  - Osteonecrosis [Unknown]
  - Osteolysis [Unknown]
  - Osteosclerosis [Unknown]
  - Rib fracture [Unknown]
  - Wound [Unknown]
  - Loose tooth [Unknown]
  - Onychomycosis [Unknown]
  - Varicose vein [Unknown]
  - Decubitus ulcer [Unknown]
  - Skin ulcer [Unknown]
  - Hyperkeratosis [Unknown]
  - Cellulitis [Recovered/Resolved]
  - Diarrhoea [Unknown]
  - Anaemia [Unknown]
  - Arthralgia [Unknown]
  - Bone pain [Unknown]
  - Productive cough [Unknown]
  - Somnolence [Unknown]
  - Abdominal distension [Unknown]
  - Hypertension [Unknown]
  - Autonomic neuropathy [Unknown]
  - Impaired gastric emptying [Unknown]
  - Amnesia [Unknown]
  - Hallucination [Unknown]
  - Paranoia [Unknown]
  - Insomnia [Unknown]
  - Polyuria [Unknown]
  - Pollakiuria [Unknown]
  - Epistaxis [Unknown]
  - Ear pain [Unknown]
  - Syncope [Unknown]
  - Melaena [Unknown]
  - Contusion [Unknown]
  - Diplopia [Unknown]
  - Chest pain [Unknown]
  - Muscle spasms [Unknown]
  - Rash [Unknown]
  - Pruritus [Unknown]
  - Haemorrhoids [Unknown]
  - Gastrooesophageal reflux disease [Unknown]
  - Localised infection [Unknown]
  - Oedema peripheral [Unknown]
  - Furuncle [Unknown]
  - Nausea [Unknown]
  - Vomiting [Unknown]
  - Decreased appetite [Unknown]
  - Visual impairment [Unknown]
  - Pulpitis dental [Unknown]
  - Bone loss [Unknown]
  - Procedural pain [Unknown]
  - Oral pain [Unknown]
  - Gingival pain [Unknown]
  - Osteoporosis [Unknown]
  - Oral fungal infection [Unknown]
  - Oral candidiasis [Unknown]
  - Breath odour [Unknown]
  - Bone swelling [Unknown]
  - Swelling face [Unknown]
  - Night sweats [Unknown]
  - Tooth fracture [Unknown]
  - Tooth injury [Unknown]
  - Aspartate aminotransferase increased [Unknown]
  - Alanine aminotransferase increased [Unknown]
  - Gamma-glutamyltransferase increased [Unknown]
  - Skin abrasion [Unknown]
  - Sinus disorder [Unknown]
  - Anaemia macrocytic [Unknown]
  - Vitamin B12 deficiency [Unknown]
  - Folate deficiency [Unknown]
  - Schizophrenia [Unknown]
  - Abnormal dreams [Unknown]
  - Pain in extremity [Unknown]
  - Pyrexia [Unknown]
  - Polydipsia [Unknown]
  - Carotene decreased [Unknown]
  - Dizziness [Unknown]
  - Temperature intolerance [Unknown]
  - Malabsorption [Unknown]
  - Vitamin D deficiency [Unknown]
  - Tendon pain [Unknown]
  - Hypoaesthesia [Unknown]
  - Neuropathy peripheral [Unknown]
  - Paraesthesia [Unknown]
  - Burning sensation [Unknown]
  - Toe walking [Unknown]
  - Thirst [Unknown]
  - Mood altered [Unknown]
  - Faeces discoloured [Unknown]
